FAERS Safety Report 6981739-0 (Version None)
Quarter: 2010Q3

REPORT INFORMATION
  Report Type: 
  Country: None (occurrence: None)
  Receive Date: 20100914
  Receipt Date: 20091019
  Transmission Date: 20110219
  Serious: Yes (Other)
  Sender: FDA-Public Use
  Company Number: US-PFIZER INC-2009253198

PATIENT
  Sex: Female
  Weight: 56.689 kg

DRUGS (1)
  1. LYRICA [Suspect]
     Indication: FIBROMYALGIA
     Dosage: FREQUENCY: 1X\DAY, EVERY DAY;
     Route: 048
     Dates: start: 20090101, end: 20090101

REACTIONS (7)
  - CONSTIPATION [None]
  - FLUID RETENTION [None]
  - JOINT EFFUSION [None]
  - JOINT SWELLING [None]
  - MUSCULOSKELETAL STIFFNESS [None]
  - PAIN [None]
  - SUICIDAL IDEATION [None]
